FAERS Safety Report 9473992 (Version 1)
Quarter: 2013Q3

REPORT INFORMATION
  Report Type: Spontaneous
  Country: US (occurrence: US)
  Receive Date: 20130823
  Receipt Date: 20130823
  Transmission Date: 20140515
  Serious: No
  Sender: FDA-Public Use
  Company Number: US-BAYER-2013-102283

PATIENT
  Age: 82 Year
  Sex: Male
  Weight: 88.44 kg

DRUGS (6)
  1. ALEVE TABLET [Suspect]
     Indication: ARTHRITIS
     Dosage: 2 DF, PRN
     Route: 048
     Dates: start: 20130821
  2. ALEVE TABLET [Suspect]
     Indication: ARTHRITIS
     Dosage: 1 DF, ONCE
     Route: 048
     Dates: start: 20130821
  3. TRIAMTERENE AND HYDROCHLOROTHIAZIDE [Concomitant]
  4. ONE A DAY MEN^S 50+ ADVANTAGE [Concomitant]
  5. CHLOR-TRIPOLON [Concomitant]
  6. VITAMINS NOS [Concomitant]

REACTIONS (1)
  - Drug ineffective [None]
